FAERS Safety Report 7481029-6 (Version None)
Quarter: 2011Q2

REPORT INFORMATION
  Report Type: 
  Country: None (occurrence: None)
  Receive Date: 20110516
  Receipt Date: 20110513
  Transmission Date: 20111010
  Serious: Yes (Hospitalization)
  Sender: FDA-Public Use
  Company Number: NL-BRISTOL-MYERS SQUIBB COMPANY-15679608

PATIENT
  Age: 43 Year
  Sex: Female
  Weight: 59 kg

DRUGS (9)
  1. CALCICHEW [Concomitant]
     Dosage: 100 MG,1 IN 1 DAY
     Dates: start: 20110204
  2. OXAZEPAM [Concomitant]
     Dosage: TABLET 10 MG,3 IN 1 AS REQUIRED
     Dates: start: 20110204
  3. REYATAZ [Suspect]
     Indication: HIV INFECTION
     Dates: start: 20110314, end: 20110316
  4. TRUVADA [Suspect]
     Indication: HIV INFECTION
     Dosage: TABLET
     Dates: start: 20110314, end: 20110316
  5. DEPAKENE [Suspect]
     Indication: BIPOLAR DISORDER
     Dosage: 300,500MG.
     Dates: start: 20110214, end: 20110316
  6. TEMAZ [Concomitant]
  7. CLEMASTINE FUMARATE [Suspect]
     Indication: RASH
     Dosage: TABLET
     Dates: start: 20110313, end: 20110316
  8. NORVIR [Suspect]
     Indication: HIV INFECTION
     Dosage: CAPSULE
     Dates: start: 20110314, end: 20110316
  9. CISORDINOL [Concomitant]
     Dosage: TABLET

REACTIONS (1)
  - DRUG RASH WITH EOSINOPHILIA AND SYSTEMIC SYMPTOMS [None]
